FAERS Safety Report 18040586 (Version 1)
Quarter: 2020Q3

REPORT INFORMATION
  Report Type: Spontaneous
  Country: DE (occurrence: DE)
  Receive Date: 20200717
  Receipt Date: 20200717
  Transmission Date: 20201103
  Serious: Yes (Other)
  Sender: FDA-Public Use
  Company Number: DE-INSUD PHARMA-2007DE00169

PATIENT

DRUGS (5)
  1. PROGESTERONE. [Suspect]
     Active Substance: PROGESTERONE
     Dosage: 200 MILLIGRAM, QD
     Route: 061
     Dates: start: 201912
  2. ESTRASORB [Suspect]
     Active Substance: ESTRADIOL HEMIHYDRATE
     Indication: MENOPAUSAL SYMPTOMS
     Dosage: 1.5 PUFFS, 1/DAY
     Route: 061
  3. PROGESTERONE. [Suspect]
     Active Substance: PROGESTERONE
     Dosage: INTERRUPTED
  4. PROGESTERONE. [Suspect]
     Active Substance: PROGESTERONE
     Indication: PREVENTION OF ENDOMETRIAL HYPERPLASIA
     Dosage: 200 MILLIGRAM, QD
     Route: 065
  5. ESTRASORB [Suspect]
     Active Substance: ESTRADIOL HEMIHYDRATE
     Dosage: 3 PUFFS, 1/DAY
     Route: 061
     Dates: start: 201912

REACTIONS (8)
  - Depressed mood [Unknown]
  - Wrong technique in product usage process [Unknown]
  - Fatigue [Unknown]
  - Dizziness [Unknown]
  - Abdominal pain lower [Unknown]
  - Sleep disorder [Unknown]
  - Ovarian haemorrhage [Unknown]
  - Ovarian cyst [Unknown]
